FAERS Safety Report 6542004-9 (Version None)
Quarter: 2010Q1

REPORT INFORMATION
  Report Type: 
  Country: None (occurrence: None)
  Receive Date: 20100119
  Receipt Date: 20100111
  Transmission Date: 20100710
  Serious: Yes (Other)
  Sender: FDA-Public Use
  Company Number: TR-ROCHE-678880

PATIENT

DRUGS (2)
  1. BEVACIZUMAB [Suspect]
     Route: 065
  2. IRINOTECAN HCL [Suspect]
     Route: 065

REACTIONS (15)
  - ANAEMIA [None]
  - BONE MARROW FAILURE [None]
  - DEEP VEIN THROMBOSIS [None]
  - DIARRHOEA [None]
  - FEBRILE NEUTROPENIA [None]
  - GASTROINTESTINAL PERFORATION [None]
  - HAEMORRHAGE [None]
  - HYPERTENSION [None]
  - MUCOSAL INFLAMMATION [None]
  - NAUSEA [None]
  - NEUTROPENIA [None]
  - PERIRECTAL ABSCESS [None]
  - PROTEINURIA [None]
  - THROMBOCYTOPENIA [None]
  - VOMITING [None]
